FAERS Safety Report 9257162 (Version 2)
Quarter: 2014Q1

REPORT INFORMATION
  Report Type: Spontaneous
  Country: US (occurrence: None)
  Receive Date: 20121212
  Receipt Date: 20130314
  Transmission Date: 20141002
  Serious: No
  Sender: FDA-Public Use
  Company Number: 1210USA000197

PATIENT
  Age: 54 Year
  Sex: Female

DRUGS (3)
  1. REBETOL [Suspect]
     Indication: HEPATITIS C
     Dosage: UNK
     Route: 048
     Dates: start: 20120727
  2. VICTRELIS [Suspect]
     Indication: HEPATITIS C
     Dosage: UNK
     Route: 048
     Dates: start: 20120907
  3. PEGASYS (PEGINTERFERON ALFA-2A) [Concomitant]

REACTIONS (16)
  - Gingival pain [None]
  - Gingivitis [None]
  - Dyspepsia [None]
  - Epistaxis [None]
  - Decreased appetite [None]
  - Respiratory disorder [None]
  - Dysgeusia [None]
  - Haemoglobin decreased [None]
  - Fatigue [None]
  - Decreased appetite [None]
  - Hunger [None]
  - Haemorrhoids [None]
  - White blood cell count decreased [None]
  - Red blood cell count decreased [None]
  - Rash [None]
  - Pruritus [None]
